FAERS Safety Report 4883509-6 (Version None)
Quarter: 2006Q1

REPORT INFORMATION
  Report Type: 
  Country: None (occurrence: None)
  Receive Date: 20060118
  Receipt Date: 20050915
  Transmission Date: 20060701
  Serious: Yes (Hospitalization)
  Sender: FDA-Public Use
  Company Number: US-MERCK-0509USA02530

PATIENT
  Age: 64 Year
  Sex: Male
  Weight: 105 kg

DRUGS (7)
  1. VIOXX [Suspect]
     Indication: ARTHRITIS
     Route: 048
     Dates: start: 20010401, end: 20020101
  2. MONOPRIL [Concomitant]
     Route: 065
  3. LORTAB [Concomitant]
     Route: 065
  4. PLAVIX [Concomitant]
     Route: 065
  5. VALIUM [Concomitant]
     Route: 065
  6. FLEXERIL [Concomitant]
     Route: 048
  7. DOXEPIN HYDROCHLORIDE [Concomitant]
     Route: 065

REACTIONS (4)
  - CARDIAC DISORDER [None]
  - CEREBROVASCULAR ACCIDENT [None]
  - DEPRESSION [None]
  - OVERDOSE [None]
